APPROVED DRUG PRODUCT: AKOVAZ
Active Ingredient: EPHEDRINE SULFATE
Strength: 50MG/ML (50MG/ML)
Dosage Form/Route: SOLUTION;INTRAVENOUS
Application: N208289 | Product #001 | TE Code: AP
Applicant: EXELA PHARMA SCIENCES LLC
Approved: Apr 29, 2016 | RLD: Yes | RS: Yes | Type: RX